FAERS Safety Report 16986019 (Version 1)
Quarter: 2019Q4

REPORT INFORMATION
  Report Type: Spontaneous
  Country: US (occurrence: US)
  Receive Date: 20190909
  Receipt Date: 20190909
  Transmission Date: 20200122
  Serious: Yes (Hospitalization)
  Sender: FDA-Public Use
  Company Number: None

PATIENT
  Age: 53 Year
  Sex: Female

DRUGS (13)
  1. PREDNISONE. [Concomitant]
     Active Substance: PREDNISONE
  2. FLAXSEED [Concomitant]
     Active Substance: FLAX SEED
  3. OPSUMIT [Suspect]
     Active Substance: MACITENTAN
     Indication: PULMONARY ARTERIAL HYPERTENSION
     Route: 048
     Dates: start: 201707
  4. MULVITAMIN [Concomitant]
  5. ASPIRIN. [Concomitant]
     Active Substance: ASPIRIN
  6. FEXOFENADINE [Concomitant]
     Active Substance: FEXOFENADINE HYDROCHLORIDE
  7. SILDENAFIL. [Concomitant]
     Active Substance: SILDENAFIL
  8. TRIAMCINOLONE TOP OINT [Concomitant]
  9. TACROLIMUS TOP OINT [Concomitant]
  10. AZATHIOPRINE. [Concomitant]
     Active Substance: AZATHIOPRINE
  11. HYDROXYCHLOROQUINE [Concomitant]
     Active Substance: HYDROXYCHLOROQUINE
  12. OCUVITE [Concomitant]
     Active Substance: VITAMINS
  13. GLUCOSAMINE-CHONDROITIN [Concomitant]
     Active Substance: CHONDROITIN SULFATE (BOVINE)\GLUCOSAMINE SULFATE

REACTIONS (2)
  - Transient ischaemic attack [None]
  - Hemiparaesthesia [None]

NARRATIVE: CASE EVENT DATE: 20190827
